FAERS Safety Report 15749556 (Version 1)
Quarter: 2018Q4

REPORT INFORMATION
  Report Type: Report from Study
  Country: NL (occurrence: NL)
  Receive Date: 20181221
  Receipt Date: 20181221
  Transmission Date: 20190205
  Serious: Yes (Other)
  Sender: FDA-Public Use
  Company Number: NL-AMGEN-NLDSL2018180718

PATIENT
  Age: 21 Year
  Sex: Female

DRUGS (2)
  1. NEUPOGEN [Suspect]
     Active Substance: FILGRASTIM
     Indication: PRODUCT USED FOR UNKNOWN INDICATION
     Dosage: (4X 30MILJ (1D1INJ IN THE EVENING) AND 5X 48 MILJ (1D1INJ IN THE MORNING)
     Route: 065
  2. NEUPOGEN [Suspect]
     Active Substance: FILGRASTIM
     Dosage: (4X 30MILJ (1D1INJ IN THE EVENING) AND 5X 48 MILJ (1D1INJ IN THE MORNING)
     Route: 065

REACTIONS (8)
  - Back pain [Unknown]
  - Dizziness [Recovered/Resolved]
  - Nausea [Recovered/Resolved]
  - Fatigue [Recovered/Resolved]
  - Pallor [Recovered/Resolved]
  - Stress [Unknown]
  - Blood pressure increased [Unknown]
  - Throat tightness [Recovered/Resolved]
